FAERS Safety Report 18382223 (Version 1)
Quarter: 2020Q4

REPORT INFORMATION
  Report Type: Spontaneous
  Country: US (occurrence: US)
  Receive Date: 20201013
  Receipt Date: 20201013
  Transmission Date: 20210114
  Serious: Yes (Other)
  Sender: FDA-Public Use
  Company Number: None

PATIENT
  Age: 8 Year
  Sex: Male
  Weight: 39.6 kg

DRUGS (3)
  1. LORATADINE. [Concomitant]
     Active Substance: LORATADINE
  2. MULTIVITAMIN [Concomitant]
     Active Substance: VITAMINS
  3. MONTELUKAST [Suspect]
     Active Substance: MONTELUKAST SODIUM
     Indication: ASTHMA
     Dosage: ?          QUANTITY:1 TABLET(S);?
     Route: 048
     Dates: start: 20170601, end: 20200915

REACTIONS (4)
  - Anxiety [None]
  - Abdominal pain upper [None]
  - Insomnia [None]
  - Hallucination [None]

NARRATIVE: CASE EVENT DATE: 20200914
